FAERS Safety Report 16614616 (Version 3)
Quarter: 2022Q4

REPORT INFORMATION
  Report Type: Spontaneous
  Country: FR (occurrence: FR)
  Receive Date: 20190723
  Receipt Date: 20221007
  Transmission Date: 20230112
  Serious: Yes (Death, Hospitalization, Other)
  Sender: FDA-Public Use
  Company Number: FR-AUROBINDO-AUR-APL-2019-042696

PATIENT
  Age: 75 Year
  Sex: Male
  Weight: 72 kg

DRUGS (8)
  1. ATENOLOL [Suspect]
     Active Substance: ATENOLOL
     Indication: Septic shock
     Dosage: 60 MILLIGRAM
     Route: 065
     Dates: start: 20180908, end: 20181002
  2. PANTOPRAZOLE [Suspect]
     Active Substance: PANTOPRAZOLE
     Indication: Product used for unknown indication
     Dosage: 20 MILLIGRAM
     Route: 048
     Dates: start: 20180908, end: 20181101
  3. PERINDOPRIL [Suspect]
     Active Substance: PERINDOPRIL
     Indication: Septic shock
     Dosage: 4 MILLIGRAM
     Route: 048
     Dates: start: 20180908, end: 20181002
  4. AMLODIPINE BESYLATE [Suspect]
     Active Substance: AMLODIPINE BESYLATE
     Indication: Septic shock
     Dosage: 5 MILLIGRAM
     Route: 048
     Dates: start: 20180908, end: 20181002
  5. ESIDREX [Suspect]
     Active Substance: HYDROCHLOROTHIAZIDE
     Indication: Blood pressure management
     Dosage: 0.5 MILLIGRAM
     Route: 048
     Dates: start: 20180908, end: 20181002
  6. MEROPENEM [Suspect]
     Active Substance: MEROPENEM
     Indication: Infection
     Dosage: 3 MILLIGRAM
     Route: 042
     Dates: start: 20180908, end: 20180930
  7. VYXEOS [Suspect]
     Active Substance: CYTARABINE\DAUNORUBICIN
     Indication: Acute myeloid leukaemia
     Dosage: 60 MILLIGRAM/SQ. METER
     Route: 042
     Dates: start: 20180706, end: 20180710
  8. PERINDOPRIL ERBUMINE [Suspect]
     Active Substance: PERINDOPRIL ERBUMINE
     Indication: Septic shock
     Dosage: UNK
     Route: 048

REACTIONS (5)
  - Pseudomonas infection [Fatal]
  - Septic shock [Fatal]
  - Stenotrophomonas infection [Fatal]
  - Dermo-hypodermitis [Fatal]
  - Erysipelas [Fatal]

NARRATIVE: CASE EVENT DATE: 20180101
